FAERS Safety Report 7481314-8 (Version None)
Quarter: 2011Q2

REPORT INFORMATION
  Report Type: 
  Country: None (occurrence: None)
  Receive Date: 20110514
  Receipt Date: 20110514
  Transmission Date: 20111010
  Serious: Yes (Other)
  Sender: FDA-Public Use
  Company Number: None

PATIENT
  Age: 21 Year
  Sex: Female
  Weight: 78.0187 kg

DRUGS (1)
  1. BEYAZ [Suspect]
     Indication: CONTRACEPTION
     Dosage: 3MG 1 A DAY .45 1MG 1 A DAY
     Dates: start: 20101101, end: 20110401

REACTIONS (2)
  - CERVIX HAEMORRHAGE UTERINE [None]
  - CERVIX DISORDER [None]
